FAERS Safety Report 24224259 (Version 9)
Quarter: 2024Q4

REPORT INFORMATION
  Report Type: Spontaneous
  Country: FR (occurrence: FR)
  Receive Date: 20240819
  Receipt Date: 20241231
  Transmission Date: 20250114
  Serious: Yes (Hospitalization, Other)
  Sender: BAXTER
  Company Number: FR-BAXTER-2024BAX023033

PATIENT
  Age: 67 Year
  Sex: Male
  Weight: 82 kg

DRUGS (56)
  1. CYCLOPHOSPHAMIDE [Suspect]
     Active Substance: CYCLOPHOSPHAMIDE
     Indication: Richter^s syndrome
     Dosage: 750 MG/M2, C1D1, AS A PART OF R-CHOP REGIMEN, 3-WEEK CYCLE (21 DAYS) (DAY 1)
     Route: 042
     Dates: start: 20240725, end: 20240725
  2. CYCLOPHOSPHAMIDE [Suspect]
     Active Substance: CYCLOPHOSPHAMIDE
     Indication: Diffuse large B-cell lymphoma stage I
     Dosage: 750 MG/M2, C2D1, TRIAL TREATMENT
     Route: 042
     Dates: start: 20240829
  3. CYCLOPHOSPHAMIDE [Suspect]
     Active Substance: CYCLOPHOSPHAMIDE
     Indication: Diffuse large B-cell lymphoma
     Dosage: 750 MG/M2, C3D1
     Route: 065
     Dates: start: 20240926
  4. CYCLOPHOSPHAMIDE [Suspect]
     Active Substance: CYCLOPHOSPHAMIDE
     Dosage: C1D1-C2D1
     Route: 042
     Dates: start: 20240725, end: 20240829
  5. DOXORUBICIN HYDROCHLORIDE [Suspect]
     Active Substance: DOXORUBICIN HYDROCHLORIDE
     Indication: Richter^s syndrome
     Dosage: 50 MG/M2, C1D1, AS A PART OF R-CHOP REGIMEN, 3-WEEK CYCLE (21 DAYS) (DAY 1)
     Route: 042
     Dates: start: 20240725, end: 20240725
  6. DOXORUBICIN HYDROCHLORIDE [Suspect]
     Active Substance: DOXORUBICIN HYDROCHLORIDE
     Indication: Diffuse large B-cell lymphoma stage I
     Dosage: 50 MG/M2, C2D1, TRIAL TREATMENT
     Route: 042
     Dates: start: 20240829
  7. DOXORUBICIN HYDROCHLORIDE [Suspect]
     Active Substance: DOXORUBICIN HYDROCHLORIDE
     Indication: Diffuse large B-cell lymphoma
     Dosage: 50 MG/M2, C3D1
     Route: 065
     Dates: start: 20240926
  8. DOXORUBICIN HYDROCHLORIDE [Suspect]
     Active Substance: DOXORUBICIN HYDROCHLORIDE
     Dosage: C1D1-C2D1
     Route: 042
     Dates: start: 20240725, end: 20240829
  9. EPCORITAMAB [Suspect]
     Active Substance: EPCORITAMAB
     Indication: Richter^s syndrome
     Dosage: 0.16 MG, PRIMING DOSE, WEEKLY (QW), C1D1, 3-WEEK CYCLE (21 DAYS) (DUOBODY-CD3XCD20)
     Route: 058
     Dates: start: 20240726, end: 20240726
  10. EPCORITAMAB [Suspect]
     Active Substance: EPCORITAMAB
     Indication: Diffuse large B-cell lymphoma stage I
     Dosage: 0.16 MG (REPRIMING DOSE), CYCLE 1 DAY 1 (RPD1)
     Route: 058
     Dates: start: 20240809, end: 20240809
  11. EPCORITAMAB [Suspect]
     Active Substance: EPCORITAMAB
     Indication: Diffuse large B-cell lymphoma
     Dosage: REPRIMING DOSE 0.8 MG, CYCLE 1 DAY 8 (RP1D8)
     Route: 058
     Dates: start: 20240816, end: 20240816
  12. EPCORITAMAB [Suspect]
     Active Substance: EPCORITAMAB
     Dosage: RP1D15- C2D1, FULL DOSE
     Route: 058
     Dates: start: 20240823, end: 20240830
  13. EPCORITAMAB [Suspect]
     Active Substance: EPCORITAMAB
     Dosage: AT C2D8, EPCORITAMAB WAS RESTARTED AT 48 MG
     Route: 065
     Dates: start: 20240913
  14. EPCORITAMAB [Suspect]
     Active Substance: EPCORITAMAB
     Dosage: C1D1
     Route: 058
     Dates: start: 20240726, end: 20240726
  15. EPCORITAMAB [Suspect]
     Active Substance: EPCORITAMAB
     Dosage: 48 MG: CYCLE 1 TO CYCLE 6, R-CHOP ON 3-WEEK CYCLE (21 DAYS) (DAY 1)
     Route: 065
  16. RITUXIMAB [Suspect]
     Active Substance: RITUXIMAB
     Indication: Richter^s syndrome
     Dosage: 375 MG/M2, C1D1, AS A PART OF R-CHOP REGIMEN, 3-WEEK CYCLE (21 DAYS) (DAY 1)
     Route: 042
     Dates: start: 20240725, end: 20240725
  17. RITUXIMAB [Suspect]
     Active Substance: RITUXIMAB
     Indication: Diffuse large B-cell lymphoma stage I
     Dosage: 375 MG/M2, TRIAL TREATMENT
     Route: 042
     Dates: start: 20240829
  18. RITUXIMAB [Suspect]
     Active Substance: RITUXIMAB
     Indication: Diffuse large B-cell lymphoma
     Dosage: 375 MG/M2, C3D1
     Route: 065
     Dates: start: 20240926
  19. RITUXIMAB [Suspect]
     Active Substance: RITUXIMAB
     Dosage: C1D1-C2D1
     Route: 042
     Dates: start: 20240725, end: 20240829
  20. VINCRISTINE [Suspect]
     Active Substance: VINCRISTINE
     Indication: Richter^s syndrome
     Dosage: 1.4 MG/M2 (RECOMMENDED CAP OF 2 MG), C1D1, AS A PART OF R-CHOP REGIMEN, 3-WEEK CYCLE (21 DAYS) (DAY
     Route: 042
     Dates: start: 20240725, end: 20240725
  21. VINCRISTINE [Suspect]
     Active Substance: VINCRISTINE
     Indication: Diffuse large B-cell lymphoma stage I
     Dosage: 1.4 MG/M2, C2D1, TRIAL TREATMENT
     Route: 042
     Dates: start: 20240829
  22. VINCRISTINE [Suspect]
     Active Substance: VINCRISTINE
     Indication: Diffuse large B-cell lymphoma
     Dosage: 1.4 MG/M2, C3D1
     Route: 065
     Dates: start: 20240926
  23. VINCRISTINE [Suspect]
     Active Substance: VINCRISTINE
     Dosage: C1D1-C2D1
     Route: 042
     Dates: start: 20240725, end: 20240829
  24. PREDNISONE [Suspect]
     Active Substance: PREDNISONE
     Indication: Richter^s syndrome
     Dosage: 100 MG/DAY, C1D1-D5, AS A PART OF R-CHOP REGIMEN, 3-WEEK CYCLE (21 DAYS) (DAY 1), INTRAVENOUS OR ORA
     Route: 048
     Dates: start: 20240725, end: 20240729
  25. PREDNISONE [Suspect]
     Active Substance: PREDNISONE
     Indication: Diffuse large B-cell lymphoma stage I
     Dosage: 100 MILLIGRAM, QD
     Route: 065
     Dates: start: 20240829, end: 20240902
  26. PREDNISONE [Suspect]
     Active Substance: PREDNISONE
     Indication: Diffuse large B-cell lymphoma
  27. KARDEGIC [Concomitant]
     Active Substance: ASPIRIN DL-LYSINE
     Dosage: UNK, START DATE: 2008 TO ONGOING
     Route: 065
  28. NEBIVOLOL [Concomitant]
     Active Substance: NEBIVOLOL
     Dosage: UNK, (START DATE: 2008), ONGOING
     Route: 065
  29. Bi preterax [Concomitant]
     Dosage: UNK, (START DATE: 2008)
     Route: 065
     Dates: end: 20240822
  30. LERCANIDIPINE [Concomitant]
     Active Substance: LERCANIDIPINE
     Dosage: UNK, (START DATE: 2023)
     Route: 065
     Dates: end: 20240815
  31. METFORMIN HYDROCHLORIDE [Concomitant]
     Active Substance: METFORMIN HYDROCHLORIDE
     Dosage: UNK, (START DATE: 2023), ONGOING
     Route: 065
  32. LIPTRUZET [Concomitant]
     Active Substance: ATORVASTATIN CALCIUM\EZETIMIBE
     Dosage: UNK, (START DATE: 2008), ONGOING
     Route: 065
  33. VALACYCLOVIR HYDROCHLORIDE [Concomitant]
     Active Substance: VALACYCLOVIR HYDROCHLORIDE
     Dosage: UNK, (START DATE: 2019), ONGOING
     Route: 065
  34. BACTRIM [Concomitant]
     Active Substance: SULFAMETHOXAZOLE\TRIMETHOPRIM
     Dosage: UNK, (START DATE: 2019), ONGOING
     Route: 065
  35. OMEPRAZOLE [Concomitant]
     Active Substance: OMEPRAZOLE
     Dosage: UNK, (START DATE:2018), ONGOING
     Route: 065
     Dates: end: 20240824
  36. EFFERALGAN [Concomitant]
     Active Substance: ACETAMINOPHEN
     Indication: Premedication
     Dosage: 1 G
     Route: 048
     Dates: start: 20240726, end: 20240726
  37. EFFERALGAN [Concomitant]
     Active Substance: ACETAMINOPHEN
     Dosage: 1 G
     Route: 048
     Dates: start: 20240809, end: 20240809
  38. EFFERALGAN [Concomitant]
     Active Substance: ACETAMINOPHEN
     Dosage: 1 G
     Route: 048
     Dates: start: 20240816, end: 20240816
  39. EFFERALGAN [Concomitant]
     Active Substance: ACETAMINOPHEN
     Dosage: 1 G
     Route: 048
     Dates: start: 20240830, end: 20240830
  40. POLARAMINE [Concomitant]
     Active Substance: DEXCHLORPHENIRAMINE MALEATE
     Indication: Premedication
     Dosage: 5 MG
     Route: 048
     Dates: start: 20240726, end: 20240726
  41. POLARAMINE [Concomitant]
     Active Substance: DEXCHLORPHENIRAMINE MALEATE
     Dosage: 5 MG
     Route: 042
     Dates: start: 20240809, end: 20240809
  42. POLARAMINE [Concomitant]
     Active Substance: DEXCHLORPHENIRAMINE MALEATE
     Dosage: 5 MG
     Route: 048
     Dates: start: 20240816, end: 20240816
  43. POLARAMINE [Concomitant]
     Active Substance: DEXCHLORPHENIRAMINE MALEATE
     Dosage: 5 MG
     Route: 048
     Dates: start: 20240830, end: 20240830
  44. CEFTRIAXONE [Concomitant]
     Active Substance: CEFTRIAXONE
     Dosage: UNK
     Route: 065
     Dates: start: 20240804, end: 20240814
  45. MORPHINE [Concomitant]
     Active Substance: MORPHINE
     Dosage: UNK
     Route: 065
     Dates: start: 20240806, end: 20240811
  46. DAPTOMYCIN [Concomitant]
     Active Substance: DAPTOMYCIN
     Dosage: UNK
     Route: 065
     Dates: start: 20240802, end: 20240809
  47. PANTOPRAZOLE [Concomitant]
     Active Substance: PANTOPRAZOLE
     Dosage: UNK
     Route: 065
     Dates: start: 20240808, end: 20240812
  48. SKENAN [Concomitant]
     Active Substance: MORPHINE SULFATE
     Dosage: UNK, ONGOING
     Route: 065
     Dates: start: 20240811
  49. ERYTHROPOIETIN [Concomitant]
     Active Substance: ERYTHROPOIETIN
     Dosage: UNK, ONGOING
     Route: 065
     Dates: start: 20240812
  50. DEXAMETHASONE [Concomitant]
     Active Substance: DEXAMETHASONE
     Dosage: 20 MG
     Route: 048
     Dates: start: 20240817, end: 20240819
  51. DEXAMETHASONE [Concomitant]
     Active Substance: DEXAMETHASONE
     Dosage: 20 MG
     Route: 048
     Dates: start: 20240824, end: 20240826
  52. DEXAMETHASONE [Concomitant]
     Active Substance: DEXAMETHASONE
     Dosage: 15 MG
     Route: 042
     Dates: start: 20240816, end: 20240826
  53. DEXAMETHASONE [Concomitant]
     Active Substance: DEXAMETHASONE
     Dosage: 15 MG
     Dates: start: 20240823
  54. FILGRASTIM [Concomitant]
     Active Substance: FILGRASTIM
     Dosage: UNK
     Route: 065
     Dates: start: 20240801, end: 20240814
  55. LANSOPRAZOLE [Concomitant]
     Active Substance: LANSOPRAZOLE
     Dosage: UNK, ONGOING
     Route: 065
     Dates: start: 20240824
  56. PERINDOPRIL [Concomitant]
     Active Substance: PERINDOPRIL
     Dosage: UNK, ONGOING
     Route: 065
     Dates: start: 20240822

REACTIONS (7)
  - Gastric ulcer [Unknown]
  - Febrile neutropenia [Recovered/Resolved]
  - Neutrophil count decreased [Recovered/Resolved]
  - Thrombocytopenia [Unknown]
  - Escherichia sepsis [Unknown]
  - Oesophagitis [Unknown]
  - Staphylococcal infection [Unknown]

NARRATIVE: CASE EVENT DATE: 20240801
